FAERS Safety Report 17996639 (Version 1)
Quarter: 2020Q3

REPORT INFORMATION
  Report Type: Report from Study
  Country: US (occurrence: US)
  Receive Date: 20200708
  Receipt Date: 20200708
  Transmission Date: 20201103
  Serious: Yes (Hospitalization)
  Sender: FDA-Public Use
  Company Number: US-EXELIXIS-CABO-20031011

PATIENT
  Age: 52 Year
  Sex: Male

DRUGS (32)
  1. GENTAMICIN. [Concomitant]
     Active Substance: GENTAMICIN
  2. LINEZOLID. [Concomitant]
     Active Substance: LINEZOLID
  3. POTASSIUM CHLORIDE. [Concomitant]
     Active Substance: POTASSIUM CHLORIDE
  4. CABOMETYX [Suspect]
     Active Substance: CABOZANTINIB S-MALATE
     Indication: THYROID CANCER
     Dosage: 80 MG, QD
     Route: 048
     Dates: start: 20191003
  5. DOXYCYCLINE HYCLATE. [Concomitant]
     Active Substance: DOXYCYCLINE HYCLATE
  6. FEROSUL [Concomitant]
     Active Substance: FERROUS SULFATE
  7. HYDROCHLOROTHIAZIDE. [Concomitant]
     Active Substance: HYDROCHLOROTHIAZIDE
  8. PROCHLORPERAZINE. [Concomitant]
     Active Substance: PROCHLORPERAZINE
  9. XGEVA [Concomitant]
     Active Substance: DENOSUMAB
  10. APAP CODEINE [Concomitant]
  11. DILTIAZEM. [Concomitant]
     Active Substance: DILTIAZEM
  12. GABAPENTIN. [Concomitant]
     Active Substance: GABAPENTIN
  13. LEVOTHYROXIN [Concomitant]
     Active Substance: LEVOTHYROXINE
  14. MEROPENEM. [Concomitant]
     Active Substance: MEROPENEM
  15. CEFDINIR. [Concomitant]
     Active Substance: CEFDINIR
  16. CLARITHROMYCIN. [Concomitant]
     Active Substance: CLARITHROMYCIN
  17. OMEPRAZOLE. [Concomitant]
     Active Substance: OMEPRAZOLE
  18. VALSARTAN. [Concomitant]
     Active Substance: VALSARTAN
  19. MAGNESIUM OXIDE. [Concomitant]
     Active Substance: MAGNESIUM OXIDE
  20. TOUJEO [Concomitant]
     Active Substance: INSULIN GLARGINE
  21. ZOFRAN [Concomitant]
     Active Substance: ONDANSETRON HYDROCHLORIDE
  22. CABOMETYX [Suspect]
     Active Substance: CABOZANTINIB S-MALATE
     Dosage: 40 MG, QD
     Route: 048
  23. AMOXICILLIN AND CLAVULANATE POTASSIUM [Concomitant]
     Active Substance: AMOXICILLIN\CLAVULANATE POTASSIUM
  24. CALCIUM CITRATE/VITAMIN D [Concomitant]
     Active Substance: CALCIUM CITRATE\VITAMIN D
  25. CIPROFLOXACIN. [Concomitant]
     Active Substance: CIPROFLOXACIN
  26. CABOMETYX [Suspect]
     Active Substance: CABOZANTINIB S-MALATE
     Dosage: 40 MG, QD
     Route: 048
  27. KETOROLAC [Concomitant]
     Active Substance: KETOROLAC TROMETHAMINE
  28. MUPIROCIN. [Concomitant]
     Active Substance: MUPIROCIN
  29. ONDANSETRON [Concomitant]
     Active Substance: ONDANSETRON
  30. PROMETH WITH CODEINE [Concomitant]
     Active Substance: CODEINE PHOSPHATE\PROMETHAZINE HYDROCHLORIDE
  31. SIMVASTATIN. [Concomitant]
     Active Substance: SIMVASTATIN
  32. TAMSULOSIN [Concomitant]
     Active Substance: TAMSULOSIN

REACTIONS (4)
  - Renal disorder [Unknown]
  - Overdose [Unknown]
  - Pneumonia [Unknown]
  - Off label use [Unknown]

NARRATIVE: CASE EVENT DATE: 20191003
